FAERS Safety Report 4820651-X (Version None)
Quarter: 2005Q4

REPORT INFORMATION
  Report Type: 
  Country: None (occurrence: None)
  Receive Date: 20051104
  Receipt Date: 20051014
  Transmission Date: 20060501
  Serious: Yes (Other)
  Sender: FDA-Public Use
  Company Number: PHBS2005BR15328

PATIENT
  Age: 13 Year
  Sex: Male
  Weight: 45 kg

DRUGS (2)
  1. TEGRETOL [Suspect]
     Indication: PSYCHOMOTOR HYPERACTIVITY
     Dosage: 200 MG/DAY
     Route: 048
     Dates: start: 20050901, end: 20050901
  2. RITALIN [Concomitant]
     Indication: PSYCHOMOTOR HYPERACTIVITY
     Dosage: 2 TABLETS/DAY
     Route: 048
     Dates: start: 20041001

REACTIONS (2)
  - ASTHENIA [None]
  - PSYCHOMOTOR SKILLS IMPAIRED [None]
